FAERS Safety Report 10201745 (Version 1)
Quarter: 2014Q2

REPORT INFORMATION
  Report Type: Spontaneous
  Country: US (occurrence: US)
  Receive Date: 20140528
  Receipt Date: 20140528
  Transmission Date: 20141212
  Serious: No
  Sender: FDA-Public Use
  Company Number: US-BRISTOL-MYERS SQUIBB COMPANY-19047182

PATIENT
  Age: 52 Year
  Sex: Female
  Weight: 124.26 kg

DRUGS (3)
  1. GLUCOPHAGE TABS 500 MG [Suspect]
     Dosage: EXP: DISCARD AFTER 23MAR2014?RX: 496623
     Dates: start: 2000
  2. VITAMIN D [Concomitant]
  3. MULTIVITAMIN [Concomitant]

REACTIONS (2)
  - Drug dose omission [Unknown]
  - Blood glucose abnormal [Unknown]
